FAERS Safety Report 17191134 (Version 3)
Quarter: 2020Q2

REPORT INFORMATION
  Report Type: Spontaneous
  Country: US (occurrence: US)
  Receive Date: 20191223
  Receipt Date: 20200610
  Transmission Date: 20200713
  Serious: Yes (Other)
  Sender: FDA-Public Use
  Company Number: US-PFIZER INC-2019548968

PATIENT
  Age: 86 Year
  Sex: Female

DRUGS (2)
  1. PREMARIN [Suspect]
     Active Substance: ESTROGENS, CONJUGATED
     Dosage: UNK (RX: DO NOT USE APPLICATOR; QUANTITY FOR 90 DAYS: APPLY PEA SIZE AMOUNT)
  2. PREMARIN [Suspect]
     Active Substance: ESTROGENS, CONJUGATED
     Dosage: UNK (STRENGTH: 0.625 %  QUANTITY FOR 90 DAYS: 1 TUBE)

REACTIONS (6)
  - Cystitis [Unknown]
  - Product prescribing error [Unknown]
  - Inflammation [Unknown]
  - Wrong technique in product usage process [Unknown]
  - Kidney infection [Unknown]
  - Off label use [Unknown]
